FAERS Safety Report 14277403 (Version 1)
Quarter: 2017Q4

REPORT INFORMATION
  Report Type: Spontaneous
  Country: AU (occurrence: AU)
  Receive Date: 20171211
  Receipt Date: 20171211
  Transmission Date: 20180321
  Serious: Yes (Other)
  Sender: FDA-Public Use
  Company Number: US-OTSUKA-KJ20043026

PATIENT

DRUGS (6)
  1. ZYPREXA [Concomitant]
     Active Substance: OLANZAPINE
     Indication: DELUSION
     Route: 065
     Dates: start: 20040810, end: 20041026
  2. FLUOXETINE [Concomitant]
     Active Substance: FLUOXETINE HYDROCHLORIDE
     Indication: ANXIETY
     Route: 065
     Dates: start: 20040817, end: 20041029
  3. FLUOXETINE [Concomitant]
     Active Substance: FLUOXETINE HYDROCHLORIDE
     Indication: ANXIETY
     Dosage: 30 MG, QD
     Dates: start: 20040817, end: 20041029
  4. ABILIFY [Suspect]
     Active Substance: ARIPIPRAZOLE
     Indication: DELUSION
     Route: 048
     Dates: start: 20041106
  5. OLANZAPINE. [Concomitant]
     Active Substance: OLANZAPINE
     Indication: DELUSION
     Dosage: 7.5 MG, QD
     Route: 048
     Dates: start: 20040810, end: 20041026
  6. ABILIFY [Suspect]
     Active Substance: ARIPIPRAZOLE
     Indication: DELUSION
     Route: 048
     Dates: start: 20041020, end: 20041029

REACTIONS (1)
  - Serotonin syndrome [Recovered/Resolved]

NARRATIVE: CASE EVENT DATE: 20041029
